FAERS Safety Report 9967655 (Version 2)
Quarter: 2014Q1

REPORT INFORMATION
  Report Type: Report from Study
  Country: PR (occurrence: PR)
  Receive Date: 20140305
  Receipt Date: 20140305
  Transmission Date: 20141002
  Serious: No
  Sender: FDA-Public Use
  Company Number: PR-ABBVIE-12P-131-1008297-00

PATIENT
  Age: 54 Year
  Sex: Female
  Weight: 89.89 kg

DRUGS (8)
  1. HUMIRA [Suspect]
     Indication: RHEUMATOID ARTHRITIS
     Route: 058
     Dates: start: 2011, end: 201303
  2. METOPROLOL [Concomitant]
     Indication: HYPERTENSION
     Route: 048
     Dates: start: 2009, end: 201308
  3. LYRICA [Concomitant]
     Indication: FIBROMYALGIA
     Dosage: DAILY AS NEEDED
     Route: 048
     Dates: start: 201212
  4. PERCOCET [Concomitant]
     Indication: FIBROMYALGIA
     Dosage: 1-3 TABLETS EVERY 8 HOURS AS NEEDED; 325-975 MG DAILY DOSE AS NEEDED
     Route: 048
     Dates: start: 2010
  5. PERCOCET [Concomitant]
     Indication: HEADACHE
  6. METHOTREXATE [Concomitant]
     Indication: RHEUMATOID ARTHRITIS
     Dosage: 5 TABLETS TWICE PER MONTH
     Route: 048
     Dates: start: 2010
  7. PLAQUENIL [Concomitant]
     Indication: RHEUMATOID ARTHRITIS
     Dosage: ONE TABLET DAILY AS NEEDED
     Route: 048
     Dates: start: 2010
  8. FIORICET [Concomitant]
     Indication: HEADACHE
     Dosage: 325-975 MG DAILY AS NEEDED; ONE TABLET EVERY 8 HOURS AS NEEDED
     Route: 048
     Dates: start: 2010

REACTIONS (3)
  - Nasopharyngitis [Recovered/Resolved]
  - Influenza [Unknown]
  - Pneumonia [Recovered/Resolved]
